FAERS Safety Report 13354110 (Version 1)
Quarter: 2017Q1

REPORT INFORMATION
  Report Type: Spontaneous
  Country: US (occurrence: US)
  Receive Date: 20170320
  Receipt Date: 20170320
  Transmission Date: 20170429
  Serious: Yes (Other)
  Sender: FDA-Public Use
  Company Number: None

PATIENT
  Age: 64 Year
  Sex: Female
  Weight: 76.5 kg

DRUGS (1)
  1. EUCRISA [Suspect]
     Active Substance: CRISABOROLE
     Indication: RASH
     Dosage: ?          QUANTITY:1 GRAMS;?
     Route: 061
     Dates: start: 20170309, end: 20170309

REACTIONS (3)
  - Flushing [None]
  - Rash [None]
  - Burning sensation [None]

NARRATIVE: CASE EVENT DATE: 20170309
